FAERS Safety Report 7149746-5 (Version None)
Quarter: 2010Q4

REPORT INFORMATION
  Report Type: 
  Country: None (occurrence: None)
  Receive Date: 20101210
  Receipt Date: 20101202
  Transmission Date: 20110411
  Serious: Yes (Other)
  Sender: FDA-Public Use
  Company Number: AU-BIOGENIDEC-2010BI041051

PATIENT
  Age: 50 Year
  Sex: Female

DRUGS (2)
  1. AVONEX [Suspect]
     Indication: MULTIPLE SCLEROSIS
     Route: 030
     Dates: start: 20101122
  2. AVONEX [Suspect]
     Route: 030
     Dates: start: 20101122

REACTIONS (4)
  - CHILLS [None]
  - DYSPNOEA [None]
  - PANIC REACTION [None]
  - PYREXIA [None]
